FAERS Safety Report 18988349 (Version 2)
Quarter: 2021Q3

REPORT INFORMATION
  Report Type: Spontaneous
  Country: JP (occurrence: JP)
  Receive Date: 20210309
  Receipt Date: 20210709
  Transmission Date: 20211014
  Serious: Yes (Death, Hospitalization, Other)
  Sender: FDA-Public Use
  Company Number: JP-GLAXOSMITHKLINE-JP2020JPN212384

PATIENT
  Age: 88 Year
  Sex: Male
  Weight: 74 kg

DRUGS (17)
  1. DUVROQ [Suspect]
     Active Substance: DAPRODUSTAT
     Indication: NEPHROGENIC ANAEMIA
     Dosage: 2 MG, QD
     Route: 048
     Dates: start: 20200925
  2. CANDESARTAN CILEXETIL TABLET [Concomitant]
     Indication: HYPERTENSION
     Dosage: 2 MG, QD
     Route: 048
  3. MECOBALAMIN TABLETS [Concomitant]
     Active Substance: METHYLCOBALAMIN
     Indication: NEUROPATHY PERIPHERAL
     Dosage: 150 ?G, TID
     Route: 048
  4. FUROSEMIDE TABLETS [Concomitant]
     Active Substance: FUROSEMIDE
     Indication: CARDIAC FAILURE CONGESTIVE
     Dosage: 60 ?G, 1D, 40 ?G IN THE MORNING AND 20 ?G AT NOON
     Route: 048
  5. TAKEPRON OD [Concomitant]
     Active Substance: LANSOPRAZOLE
     Indication: CEREBRAL INFARCTION
     Dosage: 30 MG, QD
     Route: 048
  6. DUVROQ [Suspect]
     Active Substance: DAPRODUSTAT
     Dosage: 4 MG
     Route: 048
     Dates: start: 20201003
  7. SPIRONOLACTONE TABLETS [Concomitant]
     Active Substance: SPIRONOLACTONE
     Indication: CARDIAC FAILURE CONGESTIVE
     Dosage: 25 ?G, QD
     Route: 048
  8. PLAVIX TABLET [Concomitant]
     Dosage: 75 MG, QD
     Route: 048
  9. LANTUS XR [Concomitant]
     Active Substance: INSULIN GLARGINE
     Dosage: 13 UNIT
  10. LANTUS XR [Concomitant]
     Active Substance: INSULIN GLARGINE
     Indication: DIABETES MELLITUS
     Dosage: 14 UNIT
     Route: 058
     Dates: start: 201712
  11. LANTUS XR [Concomitant]
     Active Substance: INSULIN GLARGINE
     Dosage: 6 UNIT
     Dates: start: 202010
  12. KREMEZIN [Concomitant]
     Active Substance: ACTIVATED CHARCOAL
     Indication: CHRONIC KIDNEY DISEASE
     Dosage: 2.0 MG, BID
     Route: 048
  13. LANTUS XR [Concomitant]
     Active Substance: INSULIN GLARGINE
     Dosage: 7 UNIT
     Route: 058
  14. SERETIDE [Suspect]
     Active Substance: FLUTICASONE PROPIONATE\SALMETEROL XINAFOATE
     Indication: WHEEZING
     Dosage: UNK
     Route: 055
     Dates: start: 202010
  15. ESTRACYT CAPSULES (ESTRAMUSTINE PHOSPHATE SODIUM) [Concomitant]
     Indication: PROSTATE CANCER
     Dosage: 2 DF, BID
     Route: 048
  16. ROSUVASTATIN CALCIUM TABLETS [Concomitant]
     Active Substance: ROSUVASTATIN CALCIUM
     Indication: DYSLIPIDAEMIA
     Dosage: 2.5 MG, QD
     Route: 048
  17. EQUA TABLETS [Concomitant]
     Indication: DIABETES MELLITUS
     Dosage: 50 MG, BID
     Route: 048

REACTIONS (12)
  - Hyperglycaemia [Fatal]
  - Pleural effusion [Unknown]
  - Hyperglycaemic hyperosmolar nonketotic syndrome [Fatal]
  - Physical deconditioning [Unknown]
  - Wheezing [Unknown]
  - Bacterial infection [Fatal]
  - Pyrexia [Unknown]
  - Cardiac failure congestive [Recovering/Resolving]
  - Blood pressure decreased [Unknown]
  - Bacterial sepsis [Recovering/Resolving]
  - Product use in unapproved indication [Unknown]
  - Product use issue [Unknown]

NARRATIVE: CASE EVENT DATE: 202010
